FAERS Safety Report 18062848 (Version 3)
Quarter: 2020Q4

REPORT INFORMATION
  Report Type: Spontaneous
  Country: DE (occurrence: DE)
  Receive Date: 20200724
  Receipt Date: 20201216
  Transmission Date: 20210113
  Serious: Yes (Hospitalization, Other)
  Sender: FDA-Public Use
  Company Number: DE-PFIZER INC-2020276815

PATIENT
  Age: 55 Year
  Sex: Male
  Weight: 83 kg

DRUGS (39)
  1. VALSARTAN. [Suspect]
     Active Substance: VALSARTAN
     Dosage: 80 MG, 4X/DAY
     Route: 065
     Dates: start: 201410
  2. CLOPIDOGREL [Concomitant]
     Active Substance: CLOPIDOGREL BISULFATE
     Dosage: 75 UNK
     Route: 065
  3. TORASEMID [Concomitant]
     Active Substance: TORSEMIDE
     Dosage: 5MG , 1X / DAY
     Dates: start: 1998, end: 2014
  4. CAPTOPRIL. [Suspect]
     Active Substance: CAPTOPRIL
     Indication: HYPERTENSION
     Dosage: 50 MG, 2X/DAY
     Dates: start: 201112
  5. VALSARTAN 1A PHARMA [Suspect]
     Active Substance: VALSARTAN
     Indication: HYPERTENSION
     Dosage: 80 MG, DAILY
     Dates: start: 20120313, end: 20180709
  6. VALSARTAN 1A PHARMA [Suspect]
     Active Substance: VALSARTAN
     Dosage: 80 MG, 2X/DAY
  7. CLOPIDOGREL [Concomitant]
     Active Substance: CLOPIDOGREL BISULFATE
     Indication: CORONARY ARTERY DISEASE
     Dosage: 75 MG, QD (MORNING)
     Route: 065
     Dates: start: 201410
  8. PANTOZOLE [Concomitant]
     Active Substance: PANTOPRAZOLE SODIUM
     Indication: ABDOMINAL DISCOMFORT
     Dosage: 20 MG, 1X/DAY (WHEN TAKING IBUPROFEN)
     Dates: start: 2014
  9. TORASEMID [Concomitant]
     Active Substance: TORSEMIDE
     Indication: HYPERTENSION
     Dosage: 1/2 MG, 2X/DAY
     Dates: start: 1998, end: 2014
  10. CANDESARTAN. [Concomitant]
     Active Substance: CANDESARTAN
     Dosage: 16 MG, 1X/DAY
     Route: 065
  11. CANDESARTAN. [Concomitant]
     Active Substance: CANDESARTAN
     Dosage: 8, MG (1/2 16 MG)
  12. BISOPROLOL [Concomitant]
     Active Substance: BISOPROLOL
     Dosage: 5 MG, QD (MORNING)
     Dates: start: 201410
  13. HYDROCHLOORTHIAZIDE [Suspect]
     Active Substance: HYDROCHLOROTHIAZIDE
     Dosage: UNK
  14. METOPROLOL. [Suspect]
     Active Substance: METOPROLOL
     Indication: ESSENTIAL TREMOR
     Dosage: UNK
     Dates: start: 201203, end: 201203
  15. VALSARTAN. [Suspect]
     Active Substance: VALSARTAN
     Dosage: 80 MG, 4X/DAY
     Route: 065
  16. BETABLOCK [Concomitant]
     Dosage: UNK
  17. TORASEMID [Concomitant]
     Active Substance: TORSEMIDE
     Dosage: 5 MG, 1X/DAY
     Dates: start: 201410
  18. IBUPROFEN. [Concomitant]
     Active Substance: IBUPROFEN
     Indication: INTERVERTEBRAL DISC PROTRUSION
     Dosage: 600 MG, BID IN THE MORNING AND IN THE EVENING AS REQUIRED
     Dates: start: 2018, end: 2018
  19. MOXONIDINE [Suspect]
     Active Substance: MOXONIDINE
     Dosage: UNK
  20. VALSARTAN 1A PHARMA [Suspect]
     Active Substance: VALSARTAN
     Dosage: UNK, 1X/DAY
     Dates: start: 2013, end: 2013
  21. VALSARTAN 1A PHARMA [Suspect]
     Active Substance: VALSARTAN
     Dosage: 80 MG, DAILY
     Dates: start: 20140710, end: 20181217
  22. KERLONE [Concomitant]
     Active Substance: BETAXOLOL HYDROCHLORIDE
     Dosage: 10 MG, DAILY
     Dates: end: 201112
  23. BISOPROLOL [Concomitant]
     Active Substance: BISOPROLOL
     Dosage: 5 MG, 1X/DAY
  24. AMLODIPINE BESILATE [Suspect]
     Active Substance: AMLODIPINE BESYLATE
     Indication: HYPERTENSION
     Dosage: 5 MG, 2X/DAY
  25. VALSARTAN. [Suspect]
     Active Substance: VALSARTAN
     Dosage: 160 MG, 1X/DAY (IN THE EVENING)
     Route: 065
  26. CLOPIDOGREL [Concomitant]
     Active Substance: CLOPIDOGREL BISULFATE
     Dosage: 75 MG, 1X/DAY
     Dates: start: 2015
  27. NEBIVOLOL. [Concomitant]
     Active Substance: NEBIVOLOL
     Dosage: UNK
     Dates: start: 201112
  28. VERAPAMIL [Suspect]
     Active Substance: VERAPAMIL HYDROCHLORIDE
     Dosage: UNK
  29. VALSARTAN. [Suspect]
     Active Substance: VALSARTAN
     Dosage: 80 MG, TWICE DAILY (MORNING, NOON)
     Route: 065
  30. DIURETIC [HYDROCHLOROTHIAZIDE] [Concomitant]
     Active Substance: HYDROCHLOROTHIAZIDE
     Dosage: (1-0-0)
  31. MUNOBAL [Concomitant]
     Active Substance: FELODIPINE
     Indication: HYPERTENSION
     Dosage: 10 MG, (5 MG 2X PER DAY) DAILY
  32. KERLONE [Concomitant]
     Active Substance: BETAXOLOL HYDROCHLORIDE
     Dosage: 20 MG, DAILY
  33. PROPRANOLOL [Suspect]
     Active Substance: PROPRANOLOL HYDROCHLORIDE
     Indication: ESSENTIAL TREMOR
     Dosage: UNK
     Dates: start: 201203, end: 201203
  34. VALSARTAN 1A PHARMA [Suspect]
     Active Substance: VALSARTAN
     Dosage: 80 MG, 4X/DAY
  35. VALSARTAN. [Suspect]
     Active Substance: VALSARTAN
     Dosage: 80 MG, 2X/DAY
     Route: 065
  36. TORASEMID [Concomitant]
     Active Substance: TORSEMIDE
     Dosage: 5 MG, 1X/DAY
     Route: 065
     Dates: start: 2014
  37. ACERCOMP [Concomitant]
     Indication: HYPERTENSION
     Dosage: (0-0-1)
     Dates: start: 1998
  38. BISOPROLOL [Concomitant]
     Active Substance: BISOPROLOL
     Indication: HYPERTENSION
     Dosage: 2.5 MG, 2X/DAY
  39. TOREM [TORASEMIDE] [Concomitant]
     Active Substance: TORSEMIDE
     Indication: HYPERTENSION
     Dosage: 5 MG, 1X/DAY
     Dates: start: 2018, end: 2018

REACTIONS (67)
  - Breathing-related sleep disorder [Unknown]
  - Peroneal nerve palsy [Unknown]
  - Oesophageal candidiasis [Unknown]
  - Abdominal pain [Unknown]
  - Hernia [Unknown]
  - Haematoma [Unknown]
  - Drug intolerance [Unknown]
  - Cervicobrachial syndrome [Unknown]
  - Migraine [Unknown]
  - Actinic keratosis [Unknown]
  - Coronary artery disease [Unknown]
  - Osteochondrosis [Unknown]
  - Patellofemoral pain syndrome [Unknown]
  - Dysphagia [Unknown]
  - Restless legs syndrome [Unknown]
  - Orthostatic intolerance [Recovered/Resolved]
  - Vertigo [Recovered/Resolved]
  - Facet joint syndrome [Unknown]
  - Factor VII deficiency [Unknown]
  - Dizziness [Unknown]
  - Skin erosion [Unknown]
  - Diverticulum [Unknown]
  - Oedema peripheral [Unknown]
  - Hypertension [Not Recovered/Not Resolved]
  - Pain [Recovered/Resolved]
  - Leukopenia [Unknown]
  - Cardiovascular insufficiency [Unknown]
  - Peripheral venous disease [Unknown]
  - Memory impairment [Recovering/Resolving]
  - Neuralgia [Unknown]
  - Head discomfort [Unknown]
  - Fear of disease [Not Recovered/Not Resolved]
  - Melanocytic naevus [Unknown]
  - Headache [Unknown]
  - Neurofibroma [Unknown]
  - Meniscus injury [Unknown]
  - Chondropathy [Unknown]
  - Helicobacter test positive [Unknown]
  - Neoplasm skin [Unknown]
  - Fatigue [Recovered/Resolved]
  - Migraine with aura [Recovered/Resolved]
  - Joint dislocation [Unknown]
  - Arthralgia [Recovering/Resolving]
  - Nausea [Recovered/Resolved]
  - Angina pectoris [Unknown]
  - Actinic keratosis [Recovered/Resolved]
  - Solar lentigo [Unknown]
  - Neck pain [Unknown]
  - Stasis dermatitis [Unknown]
  - Abdominal discomfort [Unknown]
  - Bursitis [Unknown]
  - Dry mouth [Unknown]
  - Duodenitis [Unknown]
  - Dyspnoea [Unknown]
  - Spinal osteoarthritis [Unknown]
  - Cognitive disorder [Recovered/Resolved]
  - Wound [Unknown]
  - Chest discomfort [Unknown]
  - Nervous system disorder [Unknown]
  - Sleep apnoea syndrome [Unknown]
  - Snoring [Unknown]
  - Pain in extremity [Recovering/Resolving]
  - Asthenia [Not Recovered/Not Resolved]
  - Quality of life decreased [Unknown]
  - Merycism [Unknown]
  - Spinal pain [Recovering/Resolving]
  - Gait disturbance [Unknown]

NARRATIVE: CASE EVENT DATE: 2011
